FAERS Safety Report 18642602 (Version 1)
Quarter: 2020Q4

REPORT INFORMATION
  Report Type: Spontaneous
  Country: US (occurrence: US)
  Receive Date: 20201218
  Receipt Date: 20201218
  Transmission Date: 20210114
  Serious: Yes (Other)
  Sender: FDA-Public Use
  Company Number: None

PATIENT
  Age: 62 Year
  Sex: Female

DRUGS (1)
  1. GLATIRAMTER ACETATE (12X1ML) 40MG/ML MYLAN [Suspect]
     Active Substance: GLATIRAMER ACETATE
     Indication: MULTIPLE SCLEROSIS
     Route: 058
     Dates: start: 20200604

REACTIONS (7)
  - Paralysis [None]
  - Dyskinesia [None]
  - Product quality issue [None]
  - Tremor [None]
  - Paravenous drug administration [None]
  - Chills [None]
  - Adverse drug reaction [None]

NARRATIVE: CASE EVENT DATE: 20201216
